FAERS Safety Report 6432069-7 (Version None)
Quarter: 2009Q4

REPORT INFORMATION
  Report Type: 
  Country: None (occurrence: None)
  Receive Date: 20091109
  Receipt Date: 20091102
  Transmission Date: 20100525
  Serious: Yes (Other)
  Sender: FDA-Public Use
  Company Number: CH-ROCHE-665916

PATIENT
  Age: 70 Year
  Sex: Male

DRUGS (5)
  1. CAPECITABINE [Suspect]
     Route: 048
  2. BEVACIZUMAB [Suspect]
     Dosage: MAINTENANCE MONOTHERAPY
     Route: 042
     Dates: start: 20090630, end: 20091007
  3. BEVACIZUMAB [Suspect]
     Route: 042
  4. ELOXATIN [Concomitant]
  5. MARCUMAR [Concomitant]

REACTIONS (2)
  - MALIGNANT NEOPLASM PROGRESSION [None]
  - NEUROPATHY PERIPHERAL [None]
